FAERS Safety Report 8221139-9 (Version None)
Quarter: 2012Q1

REPORT INFORMATION
  Report Type: 
  Country: None (occurrence: None)
  Receive Date: 20120320
  Receipt Date: 20120313
  Transmission Date: 20120608
  Serious: Yes (Hospitalization, Disabling)
  Sender: FDA-Public Use
  Company Number: FR-PFIZER INC-2012065426

PATIENT
  Age: 39 Year
  Sex: Male

DRUGS (4)
  1. OXALIPLATIN [Concomitant]
     Indication: NON-HODGKIN'S LYMPHOMA
     Dosage: 123 MG, SINGLE
     Route: 042
     Dates: start: 20110506, end: 20110506
  2. CYTARABINE [Suspect]
     Indication: NON-HODGKIN'S LYMPHOMA
     Dosage: 2000 MG/M2, CYCLIC
     Route: 042
     Dates: start: 20101223, end: 20110506
  3. DEXAMETHASONE [Concomitant]
     Indication: NON-HODGKIN'S LYMPHOMA
     Dosage: 40 MG, CYCLIC
     Route: 048
     Dates: start: 20101223, end: 20110504
  4. CISPLATIN [Suspect]
     Indication: NON-HODGKIN'S LYMPHOMA
     Dosage: 100 MG/M2, MONTHLY
     Route: 042
     Dates: start: 20101223, end: 20110504

REACTIONS (4)
  - FACIAL PARESIS [None]
  - HEMIPARESIS [None]
  - VISUAL ACUITY REDUCED [None]
  - DEAFNESS BILATERAL [None]
